FAERS Safety Report 6621730-7 (Version None)
Quarter: 2010Q1

REPORT INFORMATION
  Report Type: 
  Country: None (occurrence: None)
  Receive Date: 20100309
  Receipt Date: 20100226
  Transmission Date: 20100710
  Serious: Yes (Other)
  Sender: FDA-Public Use
  Company Number: JP-AMGEN-US375594

PATIENT
  Sex: Female
  Weight: 63 kg

DRUGS (6)
  1. ENBREL [Suspect]
     Indication: RHEUMATOID ARTHRITIS
     Route: 058
     Dates: start: 20091002, end: 20091215
  2. FLUTICASONE PROPIONATE [Suspect]
     Indication: INTERSTITIAL LUNG DISEASE
     Route: 055
     Dates: start: 20091002
  3. SPIRIVA [Suspect]
     Indication: INTERSTITIAL LUNG DISEASE
     Route: 055
     Dates: start: 20090918
  4. MEPTIN [Suspect]
     Indication: INTERSTITIAL LUNG DISEASE
     Dosage: NOT SPECIFIED
     Route: 055
     Dates: start: 20090918
  5. CLARITHROMYCIN [Suspect]
     Indication: INTERSTITIAL LUNG DISEASE
     Route: 048
     Dates: start: 20071116
  6. MUCOSOLVAN [Suspect]
     Indication: INTERSTITIAL LUNG DISEASE
     Dosage: NOT SPECIFIED
     Route: 048
     Dates: start: 20090410

REACTIONS (3)
  - CELL MARKER INCREASED [None]
  - CONDITION AGGRAVATED [None]
  - INTERSTITIAL LUNG DISEASE [None]
